FAERS Safety Report 17795624 (Version 1)
Quarter: 2020Q2

REPORT INFORMATION
  Report Type: Report from Study
  Country: GB (occurrence: GB)
  Receive Date: 20200516
  Receipt Date: 20200516
  Transmission Date: 20200714
  Serious: Yes (Other)
  Sender: FDA-Public Use
  Company Number: GB-SAMSUNG BIOEPIS-SB-2020-15501

PATIENT
  Sex: Female

DRUGS (1)
  1. IMRALDI [Suspect]
     Active Substance: ADALIMUMAB
     Indication: ANKYLOSING SPONDYLITIS
     Route: 058
     Dates: start: 20200115

REACTIONS (4)
  - Malaise [Unknown]
  - Kidney infection [Not Recovered/Not Resolved]
  - Tinea pedis [Not Recovered/Not Resolved]
  - Pain [Not Recovered/Not Resolved]
